FAERS Safety Report 6620998-0 (Version None)
Quarter: 2010Q1

REPORT INFORMATION
  Report Type: 
  Country: None (occurrence: None)
  Receive Date: 20100309
  Receipt Date: 20100301
  Transmission Date: 20100710
  Serious: Yes (Hospitalization, Other)
  Sender: FDA-Public Use
  Company Number: PHHY2009CA16639

PATIENT
  Sex: Female

DRUGS (14)
  1. SANDOSTATIN LAR [Suspect]
     Indication: CARCINOID TUMOUR
     Dosage: 40 MG EVERY 4 WEEKS
     Route: 030
     Dates: start: 20001106
  2. METFORMIN HYDROCHLORIDE [Concomitant]
  3. METOPROLOL [Concomitant]
  4. LASIX [Concomitant]
  5. ZANTAC [Concomitant]
     Dosage: 75 MG
     Route: 048
  6. INSULIN [Concomitant]
  7. COZAAR [Concomitant]
     Dosage: 50 ML
  8. PARIET [Concomitant]
  9. FUROSEMIDE [Concomitant]
     Dosage: UNK/DAY
  10. POTASSIUM [Concomitant]
     Dosage: UNK/DAY
  11. ASPIRIN [Concomitant]
     Dosage: UNK/DAY
  12. LOSARTAN POTASSIUM [Concomitant]
     Dosage: UNK/DAY
  13. RABEPRAZOLE SODIUM [Concomitant]
     Dosage: UNK/DAY
  14. ACETAMINOPHEN [Concomitant]
     Dosage: UNK/DAY

REACTIONS (10)
  - BALANCE DISORDER [None]
  - CARDIAC FAILURE [None]
  - CONCUSSION [None]
  - CORONARY ARTERY BYPASS [None]
  - CORONARY ARTERY DISEASE [None]
  - DIZZINESS [None]
  - DYSPNOEA [None]
  - FALL [None]
  - INJURY [None]
  - SCIATICA [None]
